FAERS Safety Report 4961620-9 (Version None)
Quarter: 2006Q1

REPORT INFORMATION
  Report Type: 
  Country: None (occurrence: None)
  Receive Date: 20060329
  Receipt Date: 20060314
  Transmission Date: 20060701
  Serious: Yes (Other)
  Sender: FDA-Public Use
  Company Number: 2006P1000190

PATIENT
  Age: 25 Year
  Sex: Female

DRUGS (1)
  1. NICARDIPINE HYDROCHLORIDE [Suspect]
     Indication: PRE-ECLAMPSIA
     Dates: start: 20050519, end: 20050523

REACTIONS (4)
  - CAESAREAN SECTION [None]
  - DRUG EXPOSURE DURING PREGNANCY [None]
  - POSTPARTUM HAEMORRHAGE [None]
  - PREMATURE LABOUR [None]
